FAERS Safety Report 7651236-8 (Version None)
Quarter: 2011Q3

REPORT INFORMATION
  Report Type: 
  Country: None (occurrence: None)
  Receive Date: 20110802
  Receipt Date: 20110721
  Transmission Date: 20111222
  Serious: Yes (Disabling, Other)
  Sender: FDA-Public Use
  Company Number: US-ELI_LILLY_AND_COMPANY-US201107006571

PATIENT
  Sex: Female

DRUGS (10)
  1. HUMALOG [Suspect]
     Indication: DIABETES MELLITUS
     Dosage: 10 U, UNKNOWN
  2. PROZAC [Concomitant]
  3. AVANDIA [Concomitant]
  4. HUMALOG [Suspect]
     Dosage: 10 U, UNKNOWN
  5. HUMULIN N [Suspect]
     Indication: DIABETES MELLITUS
  6. HUMALOG [Suspect]
     Dosage: 20 U, UNKNOWN
  7. LANTUS [Concomitant]
     Dosage: UNK
  8. HUMULIN R [Suspect]
     Indication: DIABETES MELLITUS
  9. TRAZODONE HYDROCHLORIDE [Concomitant]
  10. ACTOS [Concomitant]

REACTIONS (10)
  - NEOPLASM PROGRESSION [None]
  - LUNG INFECTION [None]
  - RETINOPATHY [None]
  - NEUROPATHY PERIPHERAL [None]
  - LUNG NEOPLASM MALIGNANT [None]
  - INSULIN RESISTANCE [None]
  - DRUG INEFFECTIVE [None]
  - OXYGEN SATURATION DECREASED [None]
  - BLOOD GLUCOSE INCREASED [None]
  - VISUAL IMPAIRMENT [None]
